FAERS Safety Report 4866389-4 (Version None)
Quarter: 2005Q4

REPORT INFORMATION
  Report Type: 
  Country: None (occurrence: None)
  Receive Date: 20051227
  Receipt Date: 20050916
  Transmission Date: 20060501
  Serious: Yes (Death, Hospitalization)
  Sender: FDA-Public Use
  Company Number: US-MERCK-0509USA02714

PATIENT
  Age: 79 Year
  Sex: Male
  Weight: 123 kg

DRUGS (9)
  1. VIOXX [Suspect]
     Indication: OSTEOARTHRITIS
     Route: 048
     Dates: start: 20020903, end: 20030907
  2. ZOLOFT [Concomitant]
     Route: 065
  3. TRAZODONE HYDROCHLORIDE [Concomitant]
     Route: 065
  4. NEURONTIN [Concomitant]
     Route: 065
  5. PROSCAR [Concomitant]
     Route: 048
  6. LORAZEPAM [Concomitant]
     Route: 065
  7. LASIX [Concomitant]
     Route: 065
  8. ASPIRIN [Concomitant]
     Route: 065
  9. TYLENOL [Concomitant]
     Route: 065

REACTIONS (7)
  - ACUTE MYOCARDIAL INFARCTION [None]
  - ARTERIOSCLEROSIS [None]
  - CARDIOGENIC SHOCK [None]
  - CELLULITIS [None]
  - HYPOTENSION [None]
  - RENAL FAILURE [None]
  - STAPHYLOCOCCAL INFECTION [None]
